FAERS Safety Report 6300319-3 (Version None)
Quarter: 2009Q3

REPORT INFORMATION
  Report Type: 
  Country: None (occurrence: None)
  Receive Date: 20090806
  Receipt Date: 20090731
  Transmission Date: 20100115
  Serious: Yes (Other)
  Sender: FDA-Public Use
  Company Number: US-GILEAD-2009-0021754

PATIENT
  Age: 21 Year
  Sex: Female

DRUGS (3)
  1. ATRIPLA [Suspect]
     Route: 048
     Dates: end: 20081126
  2. COMBIVIR [Concomitant]
     Route: 048
     Dates: start: 20081126
  3. KALETRA [Concomitant]
     Route: 048
     Dates: start: 20081126

REACTIONS (2)
  - PRE-ECLAMPSIA [None]
  - STILLBIRTH [None]
